FAERS Safety Report 22099870 (Version 1)
Quarter: 2023Q1

REPORT INFORMATION
  Report Type: Spontaneous
  Country: US (occurrence: US)
  Receive Date: 20230315
  Receipt Date: 20230315
  Transmission Date: 20230417
  Serious: No
  Sender: FDA-Public Use
  Company Number: US-BAYER-2023A030208

PATIENT
  Age: 88 Year
  Sex: Female

DRUGS (1)
  1. MIRALAX [Suspect]
     Active Substance: POLYETHYLENE GLYCOL 3350
     Indication: Gastrointestinal disorder
     Dosage: 17 G, QD
     Route: 048
     Dates: start: 202302, end: 202302

REACTIONS (5)
  - Flatulence [Unknown]
  - Drug ineffective [Unknown]
  - Adverse drug reaction [Unknown]
  - Diarrhoea [Unknown]
  - Incorrect dose administered [Unknown]
